FAERS Safety Report 8906034 (Version 1)
Quarter: 2012Q4

REPORT INFORMATION
  Report Type: Report from Study
  Country: US (occurrence: US)
  Receive Date: 20121109
  Receipt Date: 20121109
  Transmission Date: 20130627
  Serious: Yes (Other)
  Sender: FDA-Public Use
  Company Number: US-GLAXOSMITHKLINE-B0843031A

PATIENT

DRUGS (1)
  1. LAPATINIB [Suspect]
     Indication: NEUROFIBROMATOSIS
     Route: 065

REACTIONS (1)
  - Impaired healing [Unknown]
